FAERS Safety Report 18880065 (Version 2)
Quarter: 2021Q1

REPORT INFORMATION
  Report Type: Not Available
  Country: US (occurrence: US)
  Receive Date: 20210211
  Receipt Date: 20210307
  Transmission Date: 20210420
  Serious: No
  Sender: FDA-Public Use
  Company Number: US-NEUROCRINE BIOSCIENCES INC.-2021NBI00406

PATIENT
  Age: 43 Year
  Sex: Female

DRUGS (6)
  1. INGREZZA [Suspect]
     Active Substance: VALBENAZINE
     Indication: TARDIVE DYSKINESIA
     Dosage: NIGHTLY
     Route: 048
     Dates: start: 20170719
  2. ATIVAN [Concomitant]
     Active Substance: LORAZEPAM
  3. TOPAMAX [Concomitant]
     Active Substance: TOPIRAMATE
  4. XANAX [Concomitant]
     Active Substance: ALPRAZOLAM
  5. BOTOX [Concomitant]
     Active Substance: ONABOTULINUMTOXINA
     Indication: MIGRAINE
  6. BACLOFEN. [Concomitant]
     Active Substance: BACLOFEN

REACTIONS (5)
  - Arthralgia [Not Recovered/Not Resolved]
  - Restlessness [Not Recovered/Not Resolved]
  - Malaise [Not Recovered/Not Resolved]
  - Migraine [Not Recovered/Not Resolved]
  - Mania [Unknown]

NARRATIVE: CASE EVENT DATE: 202101
